FAERS Safety Report 5125167-1 (Version None)
Quarter: 2006Q4

REPORT INFORMATION
  Report Type: 
  Country: None (occurrence: None)
  Receive Date: 20061011
  Receipt Date: 20060524
  Transmission Date: 20070319
  Serious: Yes (Hospitalization)
  Sender: FDA-Public Use
  Company Number: PHEH2006US06793

PATIENT
  Age: 13 Year
  Sex: Female

DRUGS (3)
  1. RITALIN LA [Suspect]
     Indication: ATTENTION DEFICIT/HYPERACTIVITY DISORDER
     Dosage: UNK, UNK
     Dates: start: 20010901, end: 20011001
  2. CONCERTA [Suspect]
     Dates: start: 20010101
  3. PAXIL [Suspect]
     Dates: start: 20010101

REACTIONS (4)
  - AGITATION [None]
  - ANGER [None]
  - ANXIETY [None]
  - SUICIDAL IDEATION [None]
